FAERS Safety Report 8691289 (Version 3)
Quarter: 2013Q3

REPORT INFORMATION
  Report Type: Report from Study
  Country: AR (occurrence: AR)
  Receive Date: 20120730
  Receipt Date: 20130705
  Transmission Date: 20140515
  Serious: Yes (Death, Hospitalization)
  Sender: FDA-Public Use
  Company Number: PHHY2012AR064207

PATIENT
  Age: 81 Year
  Sex: Male

DRUGS (2)
  1. EXELON PATCH [Suspect]
     Indication: DEMENTIA WITH LEWY BODIES
     Dosage: 4.6 MG\24HRS (9MG/ 5CM2/)
     Route: 062
     Dates: start: 201206
  2. EXELON PATCH [Suspect]
     Dosage: 9.5 MG, DAILY (10 CM)
     Route: 062

REACTIONS (5)
  - Pneumonia [Fatal]
  - Choking [Recovered/Resolved]
  - Aspiration [Recovered/Resolved]
  - Oral infection [Unknown]
  - Aphasia [Unknown]
